FAERS Safety Report 9845402 (Version 2)
Quarter: 2014Q3

REPORT INFORMATION
  Report Type: Spontaneous
  Country: US (occurrence: None)
  Receive Date: 20140122
  Receipt Date: 20140716
  Transmission Date: 20150326
  Serious: Yes (Hospitalization)
  Sender: FDA-Public Use
  Company Number: 2014-US-000203

PATIENT
  Age: 65 Year
  Sex: Male
  Weight: 68.9 kg

DRUGS (1)
  1. XYREM [Suspect]
     Active Substance: SODIUM OXYBATE
     Indication: INSOMNIA
     Route: 048
     Dates: start: 200409, end: 2005

REACTIONS (3)
  - Enterocolitis infectious [None]
  - Infectious colitis [None]
  - Off label use [None]

NARRATIVE: CASE EVENT DATE: 20140106
